FAERS Safety Report 10062636 (Version 1)
Quarter: 2014Q1

REPORT INFORMATION
  Report Type: Spontaneous
  Country: US (occurrence: None)
  Receive Date: 20140318
  Receipt Date: 20140318
  Transmission Date: 20141002
  Serious: Yes (Hospitalization)
  Sender: FDA-Public Use
  Company Number: 101163

PATIENT
  Age: 53 Year
  Sex: Male

DRUGS (13)
  1. ROTIGOTINE [Suspect]
     Indication: PARKINSON^S DISEASE
     Dates: start: 2013, end: 2013
  2. OMEPRAZOLE [Concomitant]
  3. CARBIDOPA W/LEVODOPA [Concomitant]
  4. LODOSYN [Concomitant]
  5. ENALAPRIL [Concomitant]
  6. DICYCLOMINE [Concomitant]
  7. LORATADINE [Concomitant]
  8. SERTRALINE [Concomitant]
  9. BABY ASPIRIN [Concomitant]
  10. LOVASTATIN [Concomitant]
  11. MELOXICAM [Concomitant]
  12. SYMBICORT [Concomitant]
  13. PROVENTIL [Concomitant]

REACTIONS (3)
  - Hallucination [None]
  - Syncope [None]
  - Dizziness [None]
